FAERS Safety Report 5602137-8 (Version None)
Quarter: 2008Q1

REPORT INFORMATION
  Report Type: 
  Country: None (occurrence: None)
  Receive Date: 20080125
  Receipt Date: 20080121
  Transmission Date: 20080703
  Serious: Yes (Other)
  Sender: FDA-Public Use
  Company Number: DE-ALLERGAN-0800812US

PATIENT
  Sex: Male

DRUGS (6)
  1. BOTOX [Suspect]
     Indication: MUSCLE SPASTICITY
     Dosage: 100 UNITS, SINGLE
     Route: 030
     Dates: start: 20060101, end: 20060101
  2. GABAPENTIN [Concomitant]
  3. TRAMADOLE [Concomitant]
  4. TETRAZEPAM [Concomitant]
  5. CLOPIDOGREL [Concomitant]
  6. ATORVASTATIN [Concomitant]

REACTIONS (4)
  - MALAISE [None]
  - MICTURITION URGENCY [None]
  - PALLOR [None]
  - RASH [None]
